FAERS Safety Report 21868186 (Version 2)
Quarter: 2023Q1

REPORT INFORMATION
  Report Type: Report from Study
  Country: US (occurrence: US)
  Receive Date: 20230116
  Receipt Date: 20230314
  Transmission Date: 20230417
  Serious: Yes (Hospitalization)
  Sender: FDA-Public Use
  Company Number: US-ABBVIE-4270402

PATIENT
  Sex: Female

DRUGS (2)
  1. HUMIRA [Suspect]
     Active Substance: ADALIMUMAB
     Indication: Hidradenitis
     Dosage: CITRATE FREE, 40 MG
     Route: 058
     Dates: start: 20220418
  2. HUMIRA [Suspect]
     Active Substance: ADALIMUMAB
     Dosage: CITRATE FREE, 40 MG
     Route: 058

REACTIONS (3)
  - Diabetes complicating pregnancy [Recovering/Resolving]
  - Maternal exposure during pregnancy [Unknown]
  - Hidradenitis [Not Recovered/Not Resolved]
